FAERS Safety Report 5298536-7 (Version None)
Quarter: 2007Q2

REPORT INFORMATION
  Report Type: 
  Country: None (occurrence: None)
  Receive Date: 20070409
  Receipt Date: 20070326
  Transmission Date: 20071010
  Serious: Yes (Hospitalization)
  Sender: FDA-Public Use
  Company Number: T200700197

PATIENT
  Age: 58 Year
  Sex: Male
  Weight: 72.6 kg

DRUGS (3)
  1. METHADONE HCL [Suspect]
     Indication: BACK PAIN
     Dosage: 30 MG, TID, ORAL
     Route: 048
     Dates: start: 20070101, end: 20070122
  2. METHADONE HCL [Suspect]
     Indication: PAIN
     Dosage: 30 MG, TID, ORAL
     Route: 048
     Dates: start: 20060101, end: 20070101
  3. PROVIGIL [Suspect]
     Indication: SLEEP APNOEA SYNDROME
     Dosage: 200 MG, QD AT BEDTIME, ORAL
     Route: 048
     Dates: start: 20061201, end: 20070122

REACTIONS (9)
  - DISORIENTATION [None]
  - DRUG INEFFECTIVE [None]
  - DRUG INTERACTION [None]
  - DRUG LEVEL DECREASED [None]
  - DRUG WITHDRAWAL SYNDROME [None]
  - HYPERVIGILANCE [None]
  - MENTAL DISORDER [None]
  - MUSCLE RIGIDITY [None]
  - TONIC CLONIC MOVEMENTS [None]
